FAERS Safety Report 8109790-8 (Version None)
Quarter: 2012Q1

REPORT INFORMATION
  Report Type: 
  Country: None (occurrence: None)
  Receive Date: 20120202
  Receipt Date: 20120119
  Transmission Date: 20120608
  Serious: No
  Sender: FDA-Public Use
  Company Number: US-AMGEN-USASP2012004070

PATIENT
  Age: 56 Year
  Sex: Female

DRUGS (2)
  1. ENBREL [Suspect]
     Indication: RHEUMATOID ARTHRITIS
     Dosage: 50 MG, QWK
     Dates: start: 20070401
  2. METHOTREXATE [Concomitant]
     Dosage: UNK

REACTIONS (9)
  - OROPHARYNGEAL PAIN [None]
  - EXTRAOCULAR MUSCLE PARESIS [None]
  - PAIN IN EXTREMITY [None]
  - ASTHENOPIA [None]
  - JOINT STIFFNESS [None]
  - HEADACHE [None]
  - MUSCULOSKELETAL STIFFNESS [None]
  - ARTHRALGIA [None]
  - PYREXIA [None]
